FAERS Safety Report 6306032-0 (Version None)
Quarter: 2009Q3

REPORT INFORMATION
  Report Type: 
  Country: None (occurrence: None)
  Receive Date: 20090810
  Receipt Date: 20090729
  Transmission Date: 20100115
  Serious: Yes (Hospitalization)
  Sender: FDA-Public Use
  Company Number: 2009AL000591

PATIENT
  Age: 73 Year
  Sex: Male
  Weight: 73.9363 kg

DRUGS (18)
  1. DIGOXIN [Suspect]
     Dosage: 1.125 MG, DAILY, PO
     Route: 048
  2. ASPIRIN [Concomitant]
  3. CLOPIDOGREL [Concomitant]
  4. CARVEDILOL [Concomitant]
  5. NITROGLYCERIN [Concomitant]
  6. LOVASTATIN [Concomitant]
  7. NIFEDIPINE [Concomitant]
  8. FUROSEMIDE [Concomitant]
  9. ISOSORBIDE [Concomitant]
  10. GLYBURIDE [Concomitant]
  11. AMITRIPTYLINE HCL [Concomitant]
  12. RANITIDINE [Concomitant]
  13. METFORMIN [Concomitant]
  14. GABAPENTIN [Concomitant]
  15. HYDROCODONE [Concomitant]
  16. METOPROLOL TARTRATE [Concomitant]
  17. LISINOPRIL [Concomitant]
  18. ACETYLCYSTEINE [Concomitant]

REACTIONS (17)
  - ACTIVITIES OF DAILY LIVING IMPAIRED [None]
  - ANXIETY [None]
  - AORTIC ANEURYSM [None]
  - BRADYCARDIA [None]
  - CARDIAC FAILURE CONGESTIVE [None]
  - CARDIOMYOPATHY [None]
  - CONDITION AGGRAVATED [None]
  - EMOTIONAL DISTRESS [None]
  - FAMILY STRESS [None]
  - FEAR [None]
  - ILL-DEFINED DISORDER [None]
  - IMPAIRED WORK ABILITY [None]
  - MULTIPLE INJURIES [None]
  - OEDEMA PERIPHERAL [None]
  - PAIN [None]
  - PYREXIA [None]
  - SOCIAL PROBLEM [None]
